FAERS Safety Report 10510499 (Version 2)
Quarter: 2014Q4

REPORT INFORMATION
  Report Type: Spontaneous
  Country: CA (occurrence: CA)
  Receive Date: 20141010
  Receipt Date: 20141024
  Transmission Date: 20150528
  Serious: Yes (Hospitalization, Other)
  Sender: FDA-Public Use
  Company Number: CA-ASTRAZENECA-2014SE75089

PATIENT
  Age: 56 Year
  Sex: Male

DRUGS (1)
  1. BRILINTA [Suspect]
     Active Substance: TICAGRELOR
     Route: 048
     Dates: end: 20140925

REACTIONS (1)
  - Thrombosis in device [Recovering/Resolving]

NARRATIVE: CASE EVENT DATE: 201409
